FAERS Safety Report 8575124-8 (Version None)
Quarter: 2012Q3

REPORT INFORMATION
  Report Type: 
  Country: None (occurrence: None)
  Receive Date: 20120807
  Receipt Date: 20120726
  Transmission Date: 20120928
  Serious: Yes (Other)
  Sender: FDA-Public Use
  Company Number: GR-SANOFI-AVENTIS-2012SA053893

PATIENT
  Age: 90 Year
  Sex: Female

DRUGS (4)
  1. LANTUS SOLOSTAR [Suspect]
     Route: 065
  2. APIDRA [Suspect]
     Route: 065
  3. SOLOSTAR [Suspect]
  4. APIDRA [Suspect]
     Route: 065

REACTIONS (3)
  - CHILLS [None]
  - INTENTIONAL DRUG MISUSE [None]
  - HYPERHIDROSIS [None]
